FAERS Safety Report 17079697 (Version 1)
Quarter: 2019Q4

REPORT INFORMATION
  Report Type: Spontaneous
  Country: US (occurrence: US)
  Receive Date: 20191029
  Receipt Date: 20191029
  Transmission Date: 20200122
  Serious: No
  Sender: FDA-Public Use
  Company Number: None

PATIENT
  Age: 78 Year
  Sex: Female

DRUGS (3)
  1. IBRANCE [Suspect]
     Active Substance: PALBOCICLIB
     Indication: BREAST CANCER
     Route: 048
     Dates: start: 201904
  2. FASLODEX [Concomitant]
     Active Substance: FULVESTRANT
  3. XGEVA PROCHLORPERAZINE [Concomitant]

REACTIONS (2)
  - Aortic aneurysm [None]
  - Atrial fibrillation [None]

NARRATIVE: CASE EVENT DATE: 20191029
